FAERS Safety Report 7550760-6 (Version None)
Quarter: 2011Q2

REPORT INFORMATION
  Report Type: 
  Country: None (occurrence: None)
  Receive Date: 20110609
  Receipt Date: 20110526
  Transmission Date: 20111010
  Serious: Yes (Death, Hospitalization, Disabling, Other)
  Sender: FDA-Public Use
  Company Number: 2010MA001066

PATIENT
  Age: 62 Year
  Sex: Female
  Weight: 54.8852 kg

DRUGS (37)
  1. PREVACID [Concomitant]
  2. RIFAMPIN [Concomitant]
  3. DESYREL [Concomitant]
  4. LOVENOX [Concomitant]
  5. NUTREN [Concomitant]
  6. WELLBUTRIN [Concomitant]
  7. SYMMETREL [Concomitant]
  8. FENTANYL [Concomitant]
  9. DIGOXIN [Concomitant]
  10. PEPCID [Concomitant]
  11. METOCLOPRAMIDE [Suspect]
     Indication: IMPAIRED GASTRIC EMPTYING
     Dosage: 10 MG;TID;PO
     Route: 048
     Dates: start: 20040518, end: 20050101
  12. LASIX [Concomitant]
  13. COUMADIN [Concomitant]
  14. VANCOMYCIN [Concomitant]
  15. CELEBREX [Concomitant]
  16. VALIUM [Concomitant]
  17. LEXAPRO [Concomitant]
  18. SINEMET [Concomitant]
  19. DOCUSATE [Concomitant]
  20. TRIFLUOPERAZINE HCL [Concomitant]
  21. LANOXIN [Concomitant]
  22. TETRABENAZINE [Concomitant]
  23. AMBIEN [Concomitant]
  24. ATIVAN [Concomitant]
  25. DOXYCYCLINE [Concomitant]
  26. ALTACE [Concomitant]
  27. DOMPERIDONE [Concomitant]
  28. XANAX [Concomitant]
  29. COREG [Concomitant]
  30. ALDACTONE [Concomitant]
  31. RISPERDAL [Concomitant]
  32. ASPIRIN [Concomitant]
  33. CUBICIN [Concomitant]
  34. PROCHLORPERAZINE TAB [Concomitant]
  35. ZOFRAN [Concomitant]
  36. NEURONTIN [Concomitant]
  37. ZETIA [Concomitant]

REACTIONS (36)
  - NAUSEA [None]
  - DEPRESSION [None]
  - EXTRADURAL ABSCESS [None]
  - DIARRHOEA [None]
  - INCONTINENCE [None]
  - DEEP VEIN THROMBOSIS [None]
  - CEREBRAL ATROPHY [None]
  - TARDIVE DYSKINESIA [None]
  - EXTRAPYRAMIDAL DISORDER [None]
  - ECONOMIC PROBLEM [None]
  - EMOTIONAL DISORDER [None]
  - URINARY TRACT INFECTION [None]
  - NO THERAPEUTIC RESPONSE [None]
  - VOMITING [None]
  - CARDIAC FAILURE CONGESTIVE [None]
  - BLOOD GLUCOSE FLUCTUATION [None]
  - CEREBRAL VENTRICLE DILATATION [None]
  - ENCEPHALOPATHY [None]
  - MYOCARDIAL INFARCTION [None]
  - DYSKINESIA [None]
  - FALL [None]
  - BACTERAEMIA [None]
  - MITRAL VALVE STENOSIS [None]
  - ABDOMINAL PAIN [None]
  - ASTHENIA [None]
  - PARKINSONISM [None]
  - PLEURAL EFFUSION [None]
  - HYPERGLYCAEMIA [None]
  - DEMENTIA [None]
  - ATRIAL SEPTAL DEFECT [None]
  - AORTIC ARTERIOSCLEROSIS [None]
  - ANXIETY [None]
  - COMPRESSION FRACTURE [None]
  - GENERAL PHYSICAL HEALTH DETERIORATION [None]
  - RESPIRATORY FAILURE [None]
  - MITRAL VALVE INCOMPETENCE [None]
